FAERS Safety Report 23075170 (Version 1)
Quarter: 2023Q4

REPORT INFORMATION
  Report Type: Spontaneous
  Country: GB (occurrence: GB)
  Receive Date: 20231017
  Receipt Date: 20231017
  Transmission Date: 20240110
  Serious: Yes (Other)
  Sender: FDA-Public Use
  Company Number: None

PATIENT
  Sex: Female

DRUGS (1)
  1. DEPO-PROVERA [Suspect]
     Active Substance: MEDROXYPROGESTERONE ACETATE
     Dosage: UNK
     Dates: end: 202202

REACTIONS (11)
  - Breast pain [Recovered/Resolved]
  - Menstruation delayed [Unknown]
  - Heavy menstrual bleeding [Unknown]
  - Polymenorrhoea [Unknown]
  - Breast enlargement [Unknown]
  - Sleep disorder [Unknown]
  - Depressed mood [Unknown]
  - Fatigue [Unknown]
  - Anxiety [Unknown]
  - Frustration tolerance decreased [Unknown]
  - Mood swings [Unknown]

NARRATIVE: CASE EVENT DATE: 20220101
